FAERS Safety Report 18399134 (Version 1)
Quarter: 2020Q4

REPORT INFORMATION
  Report Type: Spontaneous
  Country: US (occurrence: US)
  Receive Date: 20201019
  Receipt Date: 20201019
  Transmission Date: 20210114
  Serious: No
  Sender: FDA-Public Use
  Company Number: None

PATIENT
  Age: 84 Year
  Sex: Female
  Weight: 73.03 kg

DRUGS (10)
  1. TESSALON [Concomitant]
     Active Substance: BENZONATATE
  2. CAPECITABINE. [Suspect]
     Active Substance: CAPECITABINE
     Indication: OESOPHAGEAL CARCINOMA
     Dosage: ?          OTHER FREQUENCY:ONCE IN THE AM;?
     Route: 048
     Dates: start: 20200626, end: 20201019
  3. BENICAR [Concomitant]
     Active Substance: OLMESARTAN MEDOXOMIL
  4. CARVEDILOL. [Concomitant]
     Active Substance: CARVEDILOL
  5. CLONAZEPAM. [Concomitant]
     Active Substance: CLONAZEPAM
  6. ONDANSETRON HCL [Concomitant]
     Active Substance: ONDANSETRON HYDROCHLORIDE
  7. SILVADENE [Concomitant]
     Active Substance: SILVER SULFADIAZINE
  8. CAPECITABINE. [Suspect]
     Active Substance: CAPECITABINE
     Indication: OESOPHAGEAL CARCINOMA
     Dosage: ?          OTHER FREQUENCY:ONCE IN THE PM;?
     Route: 048
     Dates: start: 20200626, end: 20201016
  9. SYNTHROID [Concomitant]
     Active Substance: LEVOTHYROXINE SODIUM
  10. HYDROCODONE-ACETAMINOPHEN [Concomitant]
     Active Substance: ACETAMINOPHEN\HYDROCODONE

REACTIONS (1)
  - Hospice care [None]

NARRATIVE: CASE EVENT DATE: 20201019
